FAERS Safety Report 7579669-9 (Version None)
Quarter: 2011Q2

REPORT INFORMATION
  Report Type: 
  Country: None (occurrence: None)
  Receive Date: 20110629
  Receipt Date: 20110610
  Transmission Date: 20111010
  Serious: Yes (Hospitalization, Other)
  Sender: FDA-Public Use
  Company Number: US-BAYER-2011-024471

PATIENT
  Age: 41 Year
  Sex: Female
  Weight: 81.633 kg

DRUGS (26)
  1. YAZ [Suspect]
  2. DROSPIRENONE AND ETHINYL ESTRADIOL [Suspect]
     Indication: ACNE
     Dosage: UNK
     Route: 048
     Dates: start: 20040101, end: 20090101
  3. IBUPROFEN [Concomitant]
  4. AMITRIPTYLINE HCL [Concomitant]
  5. SINGULAIR [Concomitant]
  6. YAZ [Suspect]
     Indication: ORAL CONTRACEPTION
  7. YAZ [Suspect]
     Indication: PREMENSTRUAL SYNDROME
  8. DROSPIRENONE AND ETHINYL ESTRADIOL [Suspect]
     Indication: PREMENSTRUAL SYNDROME
  9. DEURATIO [Concomitant]
     Indication: NEUROPATHY PERIPHERAL
  10. YASMIN [Suspect]
     Indication: ORAL CONTRACEPTION
  11. DROSPIRENONE AND ETHINYL ESTRADIOL [Suspect]
  12. MAXZIDE [Concomitant]
     Indication: HYPERTENSION
  13. SEROQUEL [Concomitant]
  14. CLONAZEPAM [Concomitant]
  15. YAZ [Suspect]
     Indication: ACNE
     Dosage: UNK
     Route: 048
     Dates: start: 20040101, end: 20090101
  16. YASMIN [Suspect]
     Indication: PREMENSTRUAL SYNDROME
  17. ULTRACET [Concomitant]
     Indication: PAIN
  18. TRIAMTERENE AND HYDROCHLOROTHIAZIDE [Concomitant]
  19. CYMBALTA [Concomitant]
     Indication: FIBROMYALGIA
  20. THYROID TAB [Concomitant]
  21. NEXIUM [Concomitant]
  22. YASMIN [Suspect]
  23. ELAVIL [Concomitant]
     Indication: FIBROMYALGIA
  24. TRAZODONE HCL [Concomitant]
  25. YASMIN [Suspect]
     Indication: ACNE
     Dosage: UNK
     Route: 048
     Dates: start: 20040101, end: 20090101
  26. TOPROL-XL [Concomitant]
     Indication: HYPERTENSION

REACTIONS (5)
  - DEEP VEIN THROMBOSIS [None]
  - BILIARY DYSKINESIA [None]
  - PAIN [None]
  - CHOLECYSTECTOMY [None]
  - INJURY [None]
